FAERS Safety Report 6802054-1 (Version None)
Quarter: 2010Q2

REPORT INFORMATION
  Report Type: 
  Country: None (occurrence: None)
  Receive Date: 20100629
  Receipt Date: 20071115
  Transmission Date: 20101027
  Serious: No
  Sender: FDA-Public Use
  Company Number: US-PFIZER INC-2007071811

PATIENT
  Sex: Male
  Weight: 65 kg

DRUGS (7)
  1. ZYVOX [Suspect]
     Indication: CHRONIC SINUSITIS
     Route: 048
     Dates: start: 20060711, end: 20060725
  2. ZYVOX [Suspect]
     Indication: STAPHYLOCOCCAL INFECTION
  3. CIPROFLOXACIN [Concomitant]
  4. MEDROL [Concomitant]
  5. AMPHOTERICIN B [Concomitant]
     Route: 045
  6. IMMUNE GLOBULIN (HUMAN) [Concomitant]
  7. CIPROFLOXACIN [Concomitant]

REACTIONS (3)
  - ANAEMIA [None]
  - BIOPSY BONE MARROW ABNORMAL [None]
  - BLOOD ERYTHROPOIETIN INCREASED [None]
